FAERS Safety Report 9962401 (Version 1)
Quarter: 2014Q1

REPORT INFORMATION
  Report Type: Report from Study
  Country: US (occurrence: US)
  Receive Date: 20140305
  Receipt Date: 20140305
  Transmission Date: 20141002
  Serious: No
  Sender: FDA-Public Use
  Company Number: US-ABBVIE-13P-163-1116230-00

PATIENT
  Sex: Female

DRUGS (10)
  1. HUMIRA [Suspect]
     Indication: RHEUMATOID ARTHRITIS
     Dates: start: 20110720
  2. HUMIRA [Suspect]
     Dates: start: 201207
  3. LOVASTATIN [Concomitant]
     Indication: PRODUCT USED FOR UNKNOWN INDICATION
     Dosage: 40 MG DAILY
  4. VITAMIN D [Concomitant]
     Indication: PRODUCT USED FOR UNKNOWN INDICATION
     Dosage: 10000 UNITS DAILY
  5. FOLIC ACID [Concomitant]
     Indication: PRODUCT USED FOR UNKNOWN INDICATION
     Dosage: 1 MG DAILY
  6. METHOTREXATE [Concomitant]
     Dosage: 250MG/10-8ML WEEKLY
     Route: 058
  7. PREDNISONE [Concomitant]
     Indication: PRODUCT USED FOR UNKNOWN INDICATION
     Dosage: 5 MG DAILY
  8. LISINOPRIL [Concomitant]
     Indication: BLOOD PRESSURE
     Dates: start: 201305
  9. ASPIRIN [Concomitant]
     Indication: BLOOD PRESSURE
  10. ALENDRONATE [Concomitant]
     Indication: OSTEOPOROSIS
     Dates: start: 201306

REACTIONS (4)
  - Fibromyalgia [Not Recovered/Not Resolved]
  - Cough [Unknown]
  - Paranasal sinus hypersecretion [Unknown]
  - Nausea [Unknown]
